FAERS Safety Report 11496516 (Version 4)
Quarter: 2016Q1

REPORT INFORMATION
  Report Type: Report from Study
  Country: US (occurrence: US)
  Receive Date: 20150911
  Receipt Date: 20160226
  Transmission Date: 20160525
  Serious: Yes (Hospitalization)
  Sender: FDA-Public Use
  Company Number: US-AMGEN-USASP2015092903

PATIENT
  Age: 80 Year
  Sex: Female

DRUGS (1)
  1. NPLATE [Suspect]
     Active Substance: ROMIPLOSTIM
     Indication: IMMUNE THROMBOCYTOPENIC PURPURA
     Dosage: UNK
     Route: 065

REACTIONS (13)
  - Myalgia [Unknown]
  - Varices oesophageal [Unknown]
  - Dyspepsia [Unknown]
  - Hepatic cirrhosis [Unknown]
  - Dizziness [Unknown]
  - Muscular weakness [Unknown]
  - Platelet count abnormal [Unknown]
  - Musculoskeletal pain [Unknown]
  - Varicose vein [Unknown]
  - Insomnia [Unknown]
  - Arthralgia [Unknown]
  - Pain in extremity [Unknown]
  - Abdominal pain [Unknown]

NARRATIVE: CASE EVENT DATE: 201507
